FAERS Safety Report 7893696-3 (Version None)
Quarter: 2011Q4

REPORT INFORMATION
  Report Type: 
  Country: None (occurrence: None)
  Receive Date: 20111104
  Receipt Date: 20111027
  Transmission Date: 20120403
  Serious: Yes (Other)
  Sender: FDA-Public Use
  Company Number: GB-VERTEX PHARMACEUTICALS INC.-AE-2011-002697

PATIENT
  Sex: Male
  Weight: 80 kg

DRUGS (3)
  1. COPEGUS [Concomitant]
     Indication: HEPATITIS C
     Dates: start: 20111014
  2. INCIVO (TELAPREVIR) [Suspect]
     Indication: HEPATITIS C
     Dates: start: 20111014, end: 20111014
  3. PEGASYS [Concomitant]
     Indication: HEPATITIS C
     Route: 058
     Dates: start: 20111014

REACTIONS (1)
  - HYPERSENSITIVITY [None]
